FAERS Safety Report 8316518-5 (Version None)
Quarter: 2012Q2

REPORT INFORMATION
  Report Type: 
  Country: None (occurrence: None)
  Receive Date: 20120427
  Receipt Date: 20120417
  Transmission Date: 20120825
  Serious: Yes (Other)
  Sender: FDA-Public Use
  Company Number: PHHY2012BR034556

PATIENT
  Age: 29 Year
  Sex: Female

DRUGS (1)
  1. FORMOTEROL FUMARATE [Suspect]
     Indication: FATIGUE
     Dosage: UNK UKN, BID
     Dates: start: 20111001

REACTIONS (5)
  - SYNCOPE [None]
  - ASTHENIA [None]
  - DIZZINESS [None]
  - NORMAL NEWBORN [None]
  - MATERNAL EXPOSURE DURING PREGNANCY [None]
